FAERS Safety Report 8425319-9 (Version None)
Quarter: 2012Q2

REPORT INFORMATION
  Report Type: 
  Country: None (occurrence: None)
  Receive Date: 20120604
  Receipt Date: 20120525
  Transmission Date: 20120825
  Serious: Yes (Hospitalization)
  Sender: FDA-Public Use
  Company Number: AUR-APL-2012-01965

PATIENT
  Age: 65 Year
  Sex: Female

DRUGS (11)
  1. OMEPRAZOLE [Concomitant]
  2. CALCIUM AND COLECALCIFEROL (CALCIUM D3 /01483701/) [Concomitant]
  3. ATORVASTATIN [Concomitant]
  4. GAVISCON ADVANCE (GAVISCON ADVANCE) [Concomitant]
  5. GLICLAZIDE (GLICLAZIDE) [Concomitant]
  6. RAMIPRIL [Suspect]
     Indication: HYPERTENSION
     Dosage: 10 MG (10 MG, 1 IN 1 D), ORAL, 5 MG (5 MG, ONCE DAILY IN MORNING), ORAL
     Route: 048
  7. RAMIPRIL [Suspect]
     Indication: DIABETES MELLITUS
     Dosage: 10 MG (10 MG, 1 IN 1 D), ORAL, 5 MG (5 MG, ONCE DAILY IN MORNING), ORAL
     Route: 048
  8. VENTOLIN [Concomitant]
  9. AMLODIPINE [Suspect]
     Indication: HYPERTENSION
     Dosage: 5 MG (5 MG, 1 IN 1 D), ORAL
     Route: 048
  10. ASPIRIN [Concomitant]
  11. NUTRITIONAL SUPPLEMENT (BUTRITUTION 6) [Concomitant]

REACTIONS (5)
  - HYPOTENSION [None]
  - DIZZINESS [None]
  - FALL [None]
  - BALANCE DISORDER [None]
  - JOINT SWELLING [None]
